FAERS Safety Report 22305869 (Version 1)
Quarter: 2023Q2

REPORT INFORMATION
  Report Type: Spontaneous
  Country: US (occurrence: US)
  Receive Date: 20230511
  Receipt Date: 20230511
  Transmission Date: 20230722
  Serious: No
  Sender: FDA-Public Use
  Company Number: US-SA-SAC20230508000242

PATIENT
  Age: 41 Year
  Sex: Female
  Weight: 83.914 kg

DRUGS (1)
  1. DUPIXENT [Suspect]
     Active Substance: DUPILUMAB
     Indication: Eosinophilic oesophagitis
     Dosage: 300 MG, QW
     Route: 058
     Dates: start: 20230418

REACTIONS (3)
  - Agitation [Recovering/Resolving]
  - Injection site irritation [Recovering/Resolving]
  - Injection site erythema [Recovering/Resolving]
